FAERS Safety Report 25388984 (Version 1)
Quarter: 2025Q2

REPORT INFORMATION
  Report Type: Spontaneous
  Country: AT (occurrence: AT)
  Receive Date: 20250603
  Receipt Date: 20250603
  Transmission Date: 20250717
  Serious: Yes (Hospitalization)
  Sender: ABBVIE
  Company Number: AT-ABBVIE-6304054

PATIENT
  Age: 62 Year
  Sex: Female

DRUGS (1)
  1. ELAHERE [Suspect]
     Active Substance: MIRVETUXIMAB SORAVTANSINE-GYNX
     Indication: Lung cancer metastatic
     Route: 042
     Dates: start: 202502

REACTIONS (6)
  - Pleural infection [Unknown]
  - C-reactive protein increased [Unknown]
  - Viral infection [Unknown]
  - Hypokalaemia [Unknown]
  - Erythema [Unknown]
  - Abdominal pain [Unknown]

NARRATIVE: CASE EVENT DATE: 20250101
